FAERS Safety Report 23187233 (Version 1)
Quarter: 2023Q4

REPORT INFORMATION
  Report Type: Spontaneous
  Country: US (occurrence: US)
  Receive Date: 20231115
  Receipt Date: 20231115
  Transmission Date: 20240110
  Serious: No
  Sender: FDA-Public Use
  Company Number: US-drreddys-LIT/USA/23/0183383

PATIENT
  Age: 17 Year
  Sex: Female

DRUGS (9)
  1. DIPHENHYDRAMINE [Suspect]
     Active Substance: DIPHENHYDRAMINE
     Indication: Rash
     Dosage: UNK
  2. thiamazole [methimazole] [Concomitant]
     Indication: Graves^ disease
  3. INSULIN NOS [Concomitant]
     Active Substance: INSULIN NOS
     Indication: Type 1 diabetes mellitus
  4. PROPRANOLOL [Concomitant]
     Active Substance: PROPRANOLOL HYDROCHLORIDE
     Indication: Graves^ disease
  5. PREDNISONE [Concomitant]
     Active Substance: PREDNISONE
     Indication: Graves^ disease
  6. IODINE [Concomitant]
     Active Substance: IODINE
     Indication: Product used for unknown indication
  7. FLUDROCORTISONE [Concomitant]
     Active Substance: FLUDROCORTISONE
     Indication: Product used for unknown indication
  8. HYDROCORTISONE [Concomitant]
     Active Substance: HYDROCORTISONE
     Indication: Stevens-Johnson syndrome
  9. immune-globulin [Concomitant]
     Indication: Stevens-Johnson syndrome

REACTIONS (1)
  - Drug ineffective [Unknown]
